FAERS Safety Report 9688484 (Version 1)
Quarter: 2013Q4

REPORT INFORMATION
  Report Type: Spontaneous
  Country: US (occurrence: None)
  Receive Date: 20131112
  Receipt Date: 20131112
  Transmission Date: 20140711
  Serious: Yes (Disabling, Other)
  Sender: FDA-Public Use
  Company Number: 1311-1411

PATIENT
  Age: 83 Year
  Sex: Male

DRUGS (1)
  1. EYELEA (AFLIBERCEPT) (INJECTION) (AFLIBERCEPT) [Suspect]
     Indication: AGE-RELATED MACULAR DEGENERATION
     Dates: start: 20131029

REACTIONS (6)
  - Endophthalmitis [None]
  - Retinal haemorrhage [None]
  - Vitrectomy [None]
  - Visual acuity reduced [None]
  - Intraocular pressure increased [None]
  - Streptococcal infection [None]
